FAERS Safety Report 9921259 (Version 2)
Quarter: 2014Q4

REPORT INFORMATION
  Report Type: Spontaneous
  Country: PL (occurrence: PL)
  Receive Date: 20140225
  Receipt Date: 20141112
  Transmission Date: 20150529
  Serious: Yes (Hospitalization)
  Sender: FDA-Public Use
  Company Number: PL-VERTEX PHARMACEUTICALS INC-2014-000940

PATIENT
  Age: 57 Year
  Sex: Female

DRUGS (3)
  1. INCIVO [Suspect]
     Active Substance: TELAPREVIR
     Indication: HEPATITIS C
     Dosage: UNK
     Route: 048
     Dates: start: 20131007, end: 20131230
  2. COPEGUS [Suspect]
     Active Substance: RIBAVIRIN
     Indication: HEPATITIS C
     Dosage: UNK
     Route: 065
     Dates: start: 20131007, end: 20140125
  3. PEGASYS [Suspect]
     Active Substance: PEGINTERFERON ALFA-2A
     Indication: HEPATITIS C
     Dosage: UNK
     Route: 065
     Dates: start: 20131007, end: 20140125

REACTIONS (5)
  - Pancytopenia [Recovered/Resolved]
  - Asthenia [Recovered/Resolved]
  - Bone marrow failure [Recovered/Resolved]
  - Pneumonia [Recovered/Resolved]
  - Sepsis [Recovered/Resolved]

NARRATIVE: CASE EVENT DATE: 20131230
